FAERS Safety Report 10588408 (Version 2)
Quarter: 2014Q4

REPORT INFORMATION
  Report Type: Spontaneous
  Country: MA (occurrence: MA)
  Receive Date: 20141117
  Receipt Date: 20141126
  Transmission Date: 20150529
  Serious: Yes (Hospitalization)
  Sender: FDA-Public Use
  Company Number: PHHY2014MA148519

PATIENT
  Age: 28 Year
  Sex: Male

DRUGS (3)
  1. VALPROIC ACID. [Suspect]
     Active Substance: VALPROIC ACID
     Indication: BIPOLAR DISORDER
     Dosage: 750 MG, QD
     Route: 065
  2. OLANZAPINE. [Suspect]
     Active Substance: OLANZAPINE
     Indication: MANIA
     Dosage: 20 MG, QD
     Route: 065
  3. VALPROIC ACID. [Interacting]
     Active Substance: VALPROIC ACID
     Dosage: 2 G, UNK
     Route: 065

REACTIONS (10)
  - Neuroleptic malignant syndrome [Recovered/Resolved]
  - Hyperhidrosis [Recovered/Resolved]
  - Dysphagia [Recovered/Resolved]
  - Heart rate increased [Recovered/Resolved]
  - Tremor [Recovered/Resolved]
  - Musculoskeletal stiffness [Recovered/Resolved]
  - Altered state of consciousness [Recovered/Resolved]
  - Body temperature increased [Recovered/Resolved]
  - Drug interaction [Unknown]
  - Blood pressure decreased [Recovered/Resolved]
